FAERS Safety Report 9464067 (Version 4)
Quarter: 2019Q3

REPORT INFORMATION
  Report Type: Report from Study
  Country: PL (occurrence: PL)
  Receive Date: 20130819
  Receipt Date: 20190713
  Transmission Date: 20191005
  Serious: Yes (Hospitalization)
  Sender: FDA-Public Use
  Company Number: PL-UCBSA-095359

PATIENT
  Age: 29 Year
  Sex: Female
  Weight: 59 kg

DRUGS (2)
  1. CERTOLIZUMAB PEGOL VS PLACEBO [Suspect]
     Active Substance: CERTOLIZUMAB PEGOL
     Indication: AXIAL SPONDYLOARTHRITIS
     Dosage: NO. OF DOSES RECEIVED: 70
     Route: 058
     Dates: start: 20101118
  2. BELOSALIC [Concomitant]
     Indication: PUSTULAR PSORIASIS
     Dosage: 1 TOP
     Route: 061
     Dates: start: 20130717, end: 20130809

REACTIONS (1)
  - Psoriasis [Recovered/Resolved]

NARRATIVE: CASE EVENT DATE: 20130808
